FAERS Safety Report 18547642 (Version 5)
Quarter: 2021Q1

REPORT INFORMATION
  Report Type: Spontaneous
  Country: CA (occurrence: CA)
  Receive Date: 20201126
  Receipt Date: 20210319
  Transmission Date: 20210419
  Serious: Yes (Other)
  Sender: FDA-Public Use
  Company Number: CA-CELLTRION INC.-2019CA027362

PATIENT

DRUGS (20)
  1. INFLECTRA [Suspect]
     Active Substance: INFLIXIMAB-DYYB
     Dosage: 400MG, 0, 2, 6 WEEKS, THEN EVERY 8 WEEKS
     Route: 042
     Dates: start: 20190412
  2. INFLECTRA [Suspect]
     Active Substance: INFLIXIMAB-DYYB
     Dosage: 400MG, 0, 2, 6 WEEKS, THEN EVERY 8 WEEKS
     Route: 042
     Dates: start: 20210118
  3. IMURAN [Concomitant]
     Active Substance: AZATHIOPRINE
     Dosage: 150 MG X1 WEEK (FOR 1 WEEK)
     Route: 048
  4. INFLECTRA [Suspect]
     Active Substance: INFLIXIMAB-DYYB
     Dosage: 400MG, 0, 2, 6 WEEKS, THEN EVERY 8 WEEKS
     Route: 042
     Dates: start: 20200205
  5. INFLECTRA [Suspect]
     Active Substance: INFLIXIMAB-DYYB
     Dosage: 400MG, 0, 2, 6 WEEKS, THEN EVERY 8 WEEKS
     Route: 042
     Dates: start: 20200401
  6. INFLECTRA [Suspect]
     Active Substance: INFLIXIMAB-DYYB
     Dosage: 400MG, 0, 2, 6 WEEKS, THEN EVERY 8 WEEKS
     Route: 042
     Dates: start: 20210310
  7. INFLECTRA [Suspect]
     Active Substance: INFLIXIMAB-DYYB
     Dosage: 400MG, 0, 2, 6 WEEKS, THEN EVERY 8 WEEKS
     Route: 042
     Dates: start: 20190215, end: 20190215
  8. INFLECTRA [Suspect]
     Active Substance: INFLIXIMAB-DYYB
     Dosage: 400MG, 0, 2, 6 WEEKS, THEN EVERY 8 WEEKS
     Route: 042
     Dates: start: 20191122
  9. INFLECTRA [Suspect]
     Active Substance: INFLIXIMAB-DYYB
     Dosage: 400MG, 0, 2, 6 WEEKS, THEN EVERY 8 WEEKS
     Route: 042
     Dates: start: 20200922
  10. INFLECTRA [Suspect]
     Active Substance: INFLIXIMAB-DYYB
     Indication: CROHN^S DISEASE
     Dosage: 400MG, 0, 2, 6 WEEKS, THEN EVERY 8 WEEKS
     Route: 042
     Dates: start: 20190103, end: 20190103
  11. INFLECTRA [Suspect]
     Active Substance: INFLIXIMAB-DYYB
     Dosage: 400MG, 0, 2, 6 WEEKS, THEN EVERY 8 WEEKS
     Route: 042
     Dates: start: 20190927
  12. INFLECTRA [Suspect]
     Active Substance: INFLIXIMAB-DYYB
     Dosage: 400MG, 0, 2, 6 WEEKS, THEN EVERY 8 WEEKS
     Route: 042
     Dates: start: 20190927
  13. INFLECTRA [Suspect]
     Active Substance: INFLIXIMAB-DYYB
     Dosage: 400MG, 0, 2, 6 WEEKS, THEN EVERY 8 WEEKS
     Route: 042
     Dates: start: 20200529
  14. INFLECTRA [Suspect]
     Active Substance: INFLIXIMAB-DYYB
     Dosage: 400MG, 0, 2, 6 WEEKS, THEN EVERY 8 WEEKS
     Route: 042
     Dates: start: 20200723
  15. PREDNISONE. [Concomitant]
     Active Substance: PREDNISONE
     Dosage: 40 MG TAPER X1 WEEK
     Route: 065
  16. INFLECTRA [Suspect]
     Active Substance: INFLIXIMAB-DYYB
     Dosage: 400MG, 0, 2, 6 WEEKS, THEN EVERY 8 WEEKS
     Route: 042
     Dates: start: 20190116, end: 20190116
  17. INFLECTRA [Suspect]
     Active Substance: INFLIXIMAB-DYYB
     Dosage: 400MG, 0, 2, 6 WEEKS, THEN EVERY 8 WEEKS
     Route: 042
     Dates: start: 20190802
  18. INFLECTRA [Suspect]
     Active Substance: INFLIXIMAB-DYYB
     Dosage: 400MG, 0, 2, 6 WEEKS, THEN EVERY 8 WEEKS
     Route: 042
     Dates: start: 20200205
  19. INFLECTRA [Suspect]
     Active Substance: INFLIXIMAB-DYYB
     Dosage: 400MG, 0, 2, 6 WEEKS, THEN EVERY 8 WEEKS
     Route: 042
     Dates: start: 20200922
  20. INFLECTRA [Suspect]
     Active Substance: INFLIXIMAB-DYYB
     Dosage: 400MG, 0, 2, 6 WEEKS, THEN EVERY 8 WEEKS
     Route: 042
     Dates: start: 20201127

REACTIONS (5)
  - Infusion site haemorrhage [Recovered/Resolved]
  - Vomiting [Recovering/Resolving]
  - Blood pressure fluctuation [Unknown]
  - Abscess [Unknown]
  - Inappropriate schedule of product administration [Unknown]

NARRATIVE: CASE EVENT DATE: 20191122
